FAERS Safety Report 14019524 (Version 1)
Quarter: 2017Q3

REPORT INFORMATION
  Report Type: Spontaneous
  Country: GB (occurrence: GB)
  Receive Date: 20170928
  Receipt Date: 20170928
  Transmission Date: 20171128
  Serious: Yes (Other)
  Sender: FDA-Public Use
  Company Number: GB-AUROBINDO-AUR-APL-2017-40909

PATIENT
  Sex: Female

DRUGS (2)
  1. DIORALYTE /06820901/ [Suspect]
     Active Substance: CITRIC ACID MONOHYDRATE\DEXTROSE\POTASSIUM CHLORIDE\SODIUM BICARBONATE\SODIUM CHLORIDE
     Indication: VOMITING
     Dosage: UNK
     Route: 065
     Dates: start: 20170602
  2. IRBESARTAN. [Suspect]
     Active Substance: IRBESARTAN
     Indication: PRODUCT USED FOR UNKNOWN INDICATION
     Dosage: UNK
     Route: 065

REACTIONS (2)
  - Acute kidney injury [Unknown]
  - Malaise [Unknown]

NARRATIVE: CASE EVENT DATE: 20170602
